FAERS Safety Report 7893438-1 (Version None)
Quarter: 2011Q4

REPORT INFORMATION
  Report Type: 
  Country: None (occurrence: None)
  Receive Date: 20111104
  Receipt Date: 20110927
  Transmission Date: 20120403
  Serious: Yes (Other)
  Sender: FDA-Public Use
  Company Number: IT-ROCHE-1000064

PATIENT
  Sex: Female

DRUGS (3)
  1. XELODA [Suspect]
     Indication: SMALL INTESTINE CARCINOMA
     Dosage: CYCLE
     Route: 048
     Dates: start: 20101111, end: 20110526
  2. IRINOTECAN HCL [Suspect]
     Indication: SMALL INTESTINE CARCINOMA
     Dosage: CYCLE
     Route: 042
     Dates: start: 20101223, end: 20110526
  3. OXALIPLATIN [Suspect]
     Indication: SMALL INTESTINE CARCINOMA
     Dosage: CYCLE
     Route: 042
     Dates: start: 20101111, end: 20101202

REACTIONS (8)
  - ABDOMINAL PAIN UPPER [None]
  - ANAEMIA [None]
  - BACK PAIN [None]
  - GAMMA-GLUTAMYLTRANSFERASE INCREASED [None]
  - DIARRHOEA [None]
  - PARAESTHESIA [None]
  - ALANINE AMINOTRANSFERASE INCREASED [None]
  - ASPARTATE AMINOTRANSFERASE INCREASED [None]
